FAERS Safety Report 18133169 (Version 1)
Quarter: 2020Q3

REPORT INFORMATION
  Report Type: Spontaneous
  Country: ZA (occurrence: ZA)
  Receive Date: 20200811
  Receipt Date: 20200811
  Transmission Date: 20201103
  Serious: Yes (Death)
  Sender: FDA-Public Use
  Company Number: ZA-ASTRAZENECA-2020SE99360

PATIENT

DRUGS (3)
  1. TREPILINE [Concomitant]
     Active Substance: AMITRIPTYLINE
     Dosage: 25.0MG UNKNOWN
  2. PAX [Concomitant]
     Dosage: 10.0MG UNKNOWN
  3. ZUVAMOR [Suspect]
     Active Substance: ROSUVASTATIN
     Dosage: 5.0MG UNKNOWN
     Route: 048

REACTIONS (1)
  - Death [Fatal]
